FAERS Safety Report 20160563 (Version 2)
Quarter: 2022Q1

REPORT INFORMATION
  Report Type: Spontaneous
  Country: SK (occurrence: SK)
  Receive Date: 20211208
  Receipt Date: 20220109
  Transmission Date: 20220423
  Serious: Yes (Other)
  Sender: FDA-Public Use
  Company Number: SK-LUPIN PHARMACEUTICALS INC.-2021-23970

PATIENT
  Age: 29 Year
  Sex: Female

DRUGS (8)
  1. RIFAMPIN [Suspect]
     Active Substance: RIFAMPIN
     Indication: Antiviral prophylaxis
     Dosage: 300 MILLIGRAM, QD (300 MG PER DAY IN THE MORNING ON AN EMPTY STOMACH)
     Route: 065
  2. URSODIOL [Suspect]
     Active Substance: URSODIOL
     Indication: Antiviral prophylaxis
     Dosage: 500 MILLIGRAM, BID
     Route: 065
  3. URSODIOL [Suspect]
     Active Substance: URSODIOL
     Dosage: 500 MILLIGRAM, TID FULL DOSE (3 X 500 MG)
     Route: 065
  4. CHOLESTYRAMINE [Suspect]
     Active Substance: CHOLESTYRAMINE
     Indication: Antiviral prophylaxis
     Dosage: UNK
     Route: 065
  5. ADEMETIONINE [Suspect]
     Active Substance: ADEMETIONINE
     Indication: Antiviral prophylaxis
     Dosage: 500 MILLIGRAM, BID (2 X 500 MG)
     Route: 048
  6. VITAMIN K [Suspect]
     Active Substance: PHYTONADIONE
     Indication: Vitamin supplementation
     Dosage: UNK
     Route: 065
  7. VITAMIN D [Suspect]
     Active Substance: VITAMIN D NOS
     Indication: Vitamin supplementation
     Dosage: UNK
     Route: 065
  8. DEXAMETHASONE [Suspect]
     Active Substance: DEXAMETHASONE
     Indication: Maternal therapy to enhance foetal lung maturity
     Dosage: UNK
     Route: 065

REACTIONS (3)
  - Exposure during pregnancy [Unknown]
  - Premature delivery [Unknown]
  - Bile output increased [Recovered/Resolved]
